FAERS Safety Report 5654343-4 (Version None)
Quarter: 2008Q1

REPORT INFORMATION
  Report Type: 
  Country: None (occurrence: None)
  Receive Date: 20080305
  Receipt Date: 20080222
  Transmission Date: 20080703
  Serious: Yes (Death)
  Sender: FDA-Public Use
  Company Number: L08-USA-00315-25

PATIENT
  Age: 45 Year
  Sex: Female

DRUGS (7)
  1. CITALOPRAM HYDROBROMIDE [Suspect]
  2. FENTANYL [Suspect]
  3. LOTREL [Suspect]
  4. QUETIAPINE [Suspect]
  5. MIRTAZAPINE [Suspect]
  6. DIPHENHYDRAMINE HCL [Suspect]
  7. PROMETHAZINE [Suspect]

REACTIONS (3)
  - CARDIAC ARREST [None]
  - DRUG TOXICITY [None]
  - RESPIRATORY ARREST [None]
